FAERS Safety Report 7676621-X (Version None)
Quarter: 2011Q3

REPORT INFORMATION
  Report Type: 
  Country: None (occurrence: None)
  Receive Date: 20110811
  Receipt Date: 20110803
  Transmission Date: 20111222
  Serious: Yes (Hospitalization)
  Sender: FDA-Public Use
  Company Number: PL-ASTELLAS-2011US004371

PATIENT
  Sex: Male
  Weight: 12 kg

DRUGS (1)
  1. TACROLIMUS [Suspect]
     Indication: DERMATITIS ATOPIC
     Dosage: 0.03 %, BID
     Route: 061
     Dates: start: 20090501

REACTIONS (2)
  - HYPERSENSITIVITY [None]
  - MOLE EXCISION [None]
